FAERS Safety Report 10388899 (Version 1)
Quarter: 2014Q1

REPORT INFORMATION
  Report Type: Spontaneous
  Country: US (occurrence: None)
  Receive Date: 20140306
  Receipt Date: 20140306
  Transmission Date: 20141002
  Serious: Yes (Other)
  Sender: FDA-Public Use
  Company Number: 163-21880-13070954

PATIENT
  Age: 83 Year
  Sex: Female

DRUGS (19)
  1. REVLIMID [Suspect]
     Indication: PLASMA CELL MYELOMA
     Dosage: 25 MG, 21 IN 28 D, PO
     Route: 048
     Dates: start: 20101006
  2. REVLIMID [Suspect]
     Indication: BONE NEOPLASM
     Dosage: 25 MG, 21 IN 28 D, PO
     Route: 048
     Dates: start: 20101006
  3. ACYCLOVIR (ACICLOVIR) (ACICLOVIR) [Concomitant]
  4. AQUAPHOR (AQUAPHOR HEALING OINTMENT) [Concomitant]
  5. BABY ASPIRIN (ACETYLSALICYLIC ACID) [Concomitant]
  6. CENTRUM SILVER [Concomitant]
  7. FLOMAX (TAMSULOSIN HYDROCHLORIDE) [Concomitant]
  8. DEXAMETHASONE [Concomitant]
  9. ZOLEDRONIC ACID [Concomitant]
  10. AVAPRO (IRBESARTAN) [Concomitant]
  11. CALCIUM +D (OS-CAL) [Concomitant]
  12. CLEOCIN T (CLINDAMYCIN PHOSPHATE) [Concomitant]
  13. FISH OIL [Concomitant]
  14. PRAVASTATIN [Concomitant]
  15. SYNTHROID (LEVOTHYROXINE SODIUM) [Concomitant]
  16. TAMSULOSIN [Concomitant]
  17. TYLENOL-CODEINE (SOLPADEINE) [Concomitant]
  18. VITAMIN D (ERGOCALCIFEROL) [Concomitant]
  19. ZYRTEC (CETIRIZINE HYDROCHLORIDE) [Concomitant]

REACTIONS (2)
  - Deep vein thrombosis [None]
  - Constipation [None]
